FAERS Safety Report 6818357-0 (Version None)
Quarter: 2010Q3

REPORT INFORMATION
  Report Type: 
  Country: None (occurrence: None)
  Receive Date: 20100706
  Receipt Date: 20071214
  Transmission Date: 20110219
  Serious: No
  Sender: FDA-Public Use
  Company Number: US-PFIZER INC-2007106126

PATIENT
  Sex: Male
  Weight: 75 kg

DRUGS (2)
  1. ZITHROMAX [Suspect]
     Indication: PHARYNGITIS
     Route: 048
     Dates: start: 20071212
  2. DIAZEPAM [Concomitant]

REACTIONS (1)
  - SOMNOLENCE [None]
